FAERS Safety Report 11074025 (Version 1)
Quarter: 2015Q2

REPORT INFORMATION
  Report Type: Spontaneous
  Country: US (occurrence: US)
  Receive Date: 20150429
  Receipt Date: 20150429
  Transmission Date: 20150821
  Serious: Yes (Death, Other)
  Sender: FDA-Public Use
  Company Number: US-ROCHE-1570170

PATIENT
  Age: 65 Year
  Sex: Male

DRUGS (1)
  1. VALCYTE [Suspect]
     Active Substance: VALGANCICLOVIR HYDROCHLORIDE
     Indication: BONE MARROW TRANSPLANT
     Route: 065

REACTIONS (2)
  - Sepsis [Fatal]
  - Graft versus host disease [Unknown]

NARRATIVE: CASE EVENT DATE: 20150118
